FAERS Safety Report 7378115-8 (Version None)
Quarter: 2011Q1

REPORT INFORMATION
  Report Type: 
  Country: None (occurrence: None)
  Receive Date: 20110317
  Receipt Date: 20110308
  Transmission Date: 20110831
  Serious: Yes (Other)
  Sender: FDA-Public Use
  Company Number: 2011SP010877

PATIENT
  Sex: Female

DRUGS (2)
  1. HALDOL [Concomitant]
  2. SAPHRIS [Suspect]
     Indication: BIPOLAR DISORDER
     Dosage: 5 MG; ; SL
     Route: 060

REACTIONS (2)
  - DISSOCIATION [None]
  - FEELING ABNORMAL [None]
